FAERS Safety Report 8164211-4 (Version None)
Quarter: 2012Q1

REPORT INFORMATION
  Report Type: 
  Country: None (occurrence: None)
  Receive Date: 20120221
  Receipt Date: 20120209
  Transmission Date: 20120608
  Serious: Yes (Hospitalization)
  Sender: FDA-Public Use
  Company Number: 2012AP000343

PATIENT
  Age: 23 Year
  Sex: Female

DRUGS (2)
  1. BUDESONIDE [Suspect]
     Indication: CROHN'S DISEASE
  2. MESALAMINE [Suspect]
     Indication: CROHN'S DISEASE

REACTIONS (1)
  - PANCREATITIS ACUTE [None]
